FAERS Safety Report 17324888 (Version 2)
Quarter: 2020Q1

REPORT INFORMATION
  Report Type: Spontaneous
  Country: US (occurrence: US)
  Receive Date: 20200127
  Receipt Date: 20200210
  Transmission Date: 20200409
  Serious: Yes (Hospitalization)
  Sender: FDA-Public Use
  Company Number: US-JNJFOC-20200128982

PATIENT
  Age: 17 Year
  Sex: Male

DRUGS (6)
  1. ZYPREXA [Concomitant]
     Active Substance: OLANZAPINE
     Route: 065
  2. INVEGA SUSTENNA [Suspect]
     Active Substance: PALIPERIDONE PALMITATE
     Indication: SCHIZOPHRENIA
     Route: 030
     Dates: start: 20191127, end: 20191127
  3. INVEGA [Suspect]
     Active Substance: PALIPERIDONE
     Route: 048
     Dates: start: 20191121
  4. INVEGA [Suspect]
     Active Substance: PALIPERIDONE
     Route: 048
     Dates: start: 201912
  5. INVEGA SUSTENNA [Suspect]
     Active Substance: PALIPERIDONE PALMITATE
     Route: 030
     Dates: start: 20191204, end: 20191204
  6. INVEGA [Suspect]
     Active Substance: PALIPERIDONE
     Indication: SCHIZOPHRENIA
     Route: 048
     Dates: start: 20191112

REACTIONS (2)
  - Schizophrenia [Recovered/Resolved]
  - Intentional self-injury [Not Recovered/Not Resolved]

NARRATIVE: CASE EVENT DATE: 20200105
